FAERS Safety Report 4318396-8 (Version None)
Quarter: 2004Q1

REPORT INFORMATION
  Report Type: 
  Country: None (occurrence: None)
  Receive Date: 20040315
  Receipt Date: 20040301
  Transmission Date: 20041129
  Serious: Yes (Life-Threatening, Hospitalization)
  Sender: FDA-Public Use
  Company Number: NSADSS2002036439

PATIENT
  Age: 62 Year
  Sex: Female

DRUGS (16)
  1. INFLIXIMAB, RECOMBINANT [Suspect]
     Indication: RHEUMATOID ARTHRITIS
     Dosage: 10 MG/KG, 1 IN 1 AS NECESSARY, INTRAVENOUS DRIP
     Route: 041
     Dates: start: 20020709, end: 20020709
  2. INFLIXIMAB, RECOMBINANT [Suspect]
     Indication: RHEUMATOID ARTHRITIS
     Dosage: 10 MG/KG, 1 IN 1 AS NECESSARY, INTRAVENOUS DRIP
     Route: 041
     Dates: start: 20020812, end: 20020812
  3. INFLIXIMAB, RECOMBINANT [Suspect]
     Indication: RHEUMATOID ARTHRITIS
     Dosage: 10 MG/KG, 1 IN 1 AS NECESSARY, INTRAVENOUS DRIP
     Route: 041
     Dates: start: 20020913, end: 20020913
  4. ZOPICLONE (ZOPICLONE) [Concomitant]
  5. CIMETIDINE [Concomitant]
  6. BENORAL (BENORILATE) SUSPENSION [Concomitant]
  7. ISONIAZID [Concomitant]
  8. METHOTREXATE [Concomitant]
  9. DOTHIEPIN HYDROCHLORIDE [Concomitant]
  10. FUROSEMIDE [Concomitant]
  11. TINZAPARIN (HEPARIN-FRACTION, SODIUM SALT) [Concomitant]
  12. LEFLUNOMIDE (LEFLUNOMIDE) [Concomitant]
  13. EFFEXOR [Concomitant]
  14. FOLIC ACID [Concomitant]
  15. SANDO K (POTASSIUM CHLORIDE) [Concomitant]
  16. ACETAMINOPHEN [Concomitant]

REACTIONS (10)
  - BRONCHIECTASIS [None]
  - CONSTIPATION [None]
  - LEFT VENTRICULAR FAILURE [None]
  - OEDEMA PERIPHERAL [None]
  - PNEUMONIA [None]
  - PNEUMONITIS [None]
  - PULMONARY FIBROSIS [None]
  - TUBERCULOSIS [None]
  - UPPER RESPIRATORY TRACT INFECTION [None]
  - URINARY TRACT INFECTION [None]
